FAERS Safety Report 6704593-0 (Version None)
Quarter: 2010Q2

REPORT INFORMATION
  Report Type: 
  Country: None (occurrence: None)
  Receive Date: 20100430
  Receipt Date: 20100419
  Transmission Date: 20101027
  Serious: Yes (Hospitalization, Other)
  Sender: FDA-Public Use
  Company Number: PHHY2010FR22333

PATIENT
  Age: 50 Year
  Sex: Male
  Weight: 62 kg

DRUGS (2)
  1. AFINITOR [Suspect]
     Indication: RENAL CANCER
     Dosage: 10 MG DAILY
     Dates: start: 20090901
  2. AFINITOR [Suspect]
     Dosage: 10 MG DAILY
     Dates: start: 20100408

REACTIONS (3)
  - ARTERITIS [None]
  - EXTREMITY NECROSIS [None]
  - INTRACARDIAC THROMBUS [None]
